FAERS Safety Report 14257372 (Version 1)
Quarter: 2017Q4

REPORT INFORMATION
  Report Type: Spontaneous
  Country: US (occurrence: US)
  Receive Date: 20171207
  Receipt Date: 20171207
  Transmission Date: 20180321
  Serious: No
  Sender: FDA-Public Use
  Company Number: US-B.I. PHARMACEUTICALS,INC./RIDGEFIELD-2017-BI-064299

PATIENT
  Age: 70 Year
  Sex: Female

DRUGS (5)
  1. SPIRIVA [Suspect]
     Active Substance: TIOTROPIUM BROMIDE MONOHYDRATE
     Indication: EMPHYSEMA
     Dosage: ADMINISTRATION CORRECT? YES ?ACTION(S) TAKEN WITH PRODUCT: DOSE NOT CHANGED
     Route: 055
     Dates: start: 2009
  2. NAPROXEN. [Concomitant]
     Active Substance: NAPROXEN
     Indication: ARTHRITIS
     Route: 065
  3. VITAMIN C [Concomitant]
     Active Substance: ASCORBIC ACID
     Indication: ANAEMIA
  4. IRON [Concomitant]
     Active Substance: IRON
     Indication: ANAEMIA
     Route: 065
  5. SPIRIVA [Suspect]
     Active Substance: TIOTROPIUM BROMIDE MONOHYDRATE
     Indication: CHRONIC OBSTRUCTIVE PULMONARY DISEASE

REACTIONS (6)
  - Chronic obstructive pulmonary disease [Not Recovered/Not Resolved]
  - Lung infection [Not Recovered/Not Resolved]
  - Gastrointestinal bacterial infection [Recovered/Resolved]
  - Abnormal loss of weight [Recovered/Resolved]
  - Vomiting projectile [Recovered/Resolved]
  - Hiatus hernia [Not Recovered/Not Resolved]

NARRATIVE: CASE EVENT DATE: 2011
